FAERS Safety Report 12425055 (Version 1)
Quarter: 2016Q2

REPORT INFORMATION
  Report Type: Report from Study
  Country: BR (occurrence: BR)
  Receive Date: 20160601
  Receipt Date: 20160601
  Transmission Date: 20160815
  Serious: Yes (Life-Threatening, Hospitalization, Other)
  Sender: FDA-Public Use
  Company Number: PHHO2009BR018621

PATIENT
  Age: 73 Year
  Sex: Female
  Weight: 65 kg

DRUGS (7)
  1. TRASTUZUMAB [Suspect]
     Active Substance: TRASTUZUMAB
     Indication: BREAST CANCER
     Dosage: 6 MG/KG, Q3W
     Route: 042
     Dates: start: 20090826, end: 20090826
  2. CAPTOPRIL. [Concomitant]
     Active Substance: CAPTOPRIL
     Indication: HYPERTENSION
     Dosage: 25 MG, TID
     Route: 048
     Dates: start: 1991
  3. AMITRIPTYLINE [Concomitant]
     Active Substance: AMITRIPTYLINE
     Indication: DEPRESSION
     Dosage: 25 MG, QD
     Route: 048
     Dates: start: 1999
  4. DIABINESE [Concomitant]
     Active Substance: CHLORPROPAMIDE
     Indication: DIABETES MELLITUS
     Dosage: 250 MG, BID
     Route: 048
     Dates: start: 1991
  5. PRINIVIL [Concomitant]
     Active Substance: LISINOPRIL
     Indication: HYPERTENSION
     Dosage: 5 MG, QD
     Route: 048
     Dates: start: 1991
  6. TICLOPIDINE [Concomitant]
     Active Substance: TICLOPIDINE
     Indication: ISCHAEMIC STROKE
     Dosage: 250 MG, QD
     Route: 048
     Dates: start: 2000
  7. TYKERB [Suspect]
     Active Substance: LAPATINIB DITOSYLATE
     Indication: BREAST CANCER
     Dosage: 1000 MG, QD
     Route: 048
     Dates: start: 20090826, end: 20090828

REACTIONS (4)
  - Cardiac failure congestive [Recovered/Resolved]
  - Pneumonia [Recovered/Resolved]
  - Metastases to liver [Unknown]
  - Pulmonary congestion [Unknown]

NARRATIVE: CASE EVENT DATE: 20090828
